FAERS Safety Report 23968472 (Version 3)
Quarter: 2024Q3

REPORT INFORMATION
  Report Type: Spontaneous
  Country: US (occurrence: US)
  Receive Date: 20240612
  Receipt Date: 20240911
  Transmission Date: 20241017
  Serious: No
  Sender: SANOFI AVENTIS
  Company Number: US-SA-SAC20240605000731

PATIENT
  Age: 16 Year
  Sex: Female
  Weight: 65.3 kg

DRUGS (1)
  1. DUPIXENT [Suspect]
     Active Substance: DUPILUMAB
     Indication: Dermatitis atopic
     Dosage: 300 MG, QOW
     Route: 058
     Dates: start: 202401

REACTIONS (9)
  - Dry mouth [Unknown]
  - Influenza [Unknown]
  - Dry skin [Unknown]
  - Product dose omission issue [Unknown]
  - Skin ulcer [Unknown]
  - Skin exfoliation [Unknown]
  - Pruritus [Unknown]
  - Eye irritation [Unknown]
  - Injection site pain [Unknown]

NARRATIVE: CASE EVENT DATE: 20240101
